FAERS Safety Report 14407619 (Version 1)
Quarter: 2018Q1

REPORT INFORMATION
  Report Type: Spontaneous
  Country: US (occurrence: US)
  Receive Date: 20180116
  Receipt Date: 20180116
  Transmission Date: 20180509
  Serious: Yes (Life-Threatening, Disabling)
  Sender: FDA-Public Use
  Company Number: None

PATIENT
  Age: 58 Year
  Sex: Female
  Weight: 74.7 kg

DRUGS (1)
  1. HYDROCHLOROTHIAZIDE 25MG [Suspect]
     Active Substance: HYDROCHLOROTHIAZIDE
     Indication: DIURETIC THERAPY
     Dosage: ?          QUANTITY:30 TABLET(S);?
     Route: 048
     Dates: start: 20171109, end: 20171204

REACTIONS (7)
  - Swollen tongue [None]
  - Weight decreased [None]
  - Mouth swelling [None]
  - Swelling face [None]
  - Drug ineffective [None]
  - Pharyngeal oedema [None]
  - Ageusia [None]

NARRATIVE: CASE EVENT DATE: 20171206
